FAERS Safety Report 16052814 (Version 2)
Quarter: 2019Q1

REPORT INFORMATION
  Report Type: Spontaneous
  Country: CZ (occurrence: CZ)
  Receive Date: 20190308
  Receipt Date: 20190318
  Transmission Date: 20190418
  Serious: Yes (Other)
  Sender: FDA-Public Use
  Company Number: CZ-MYLANLABS-2019M1020954

PATIENT
  Age: 58 Year
  Sex: Female

DRUGS (15)
  1. ESCITALOPRAM [Suspect]
     Active Substance: ESCITALOPRAM OXALATE
     Indication: MAJOR DEPRESSION
     Dosage: UNK UNK,UNK
     Route: 065
  2. ZIPRASIDONE. [Suspect]
     Active Substance: ZIPRASIDONE
     Indication: MAJOR DEPRESSION
     Dosage: UNK
  3. RISPERIDONE. [Suspect]
     Active Substance: RISPERIDONE
     Indication: MAJOR DEPRESSION
     Dosage: UNK UNK,UNK
     Route: 065
  4. CLONAZEPAM. [Concomitant]
     Active Substance: CLONAZEPAM
     Indication: DELIRIUM
     Dosage: UNK
  5. ARIPIPRAZOLE. [Suspect]
     Active Substance: ARIPIPRAZOLE
     Indication: MAJOR DEPRESSION
     Dosage: UNK
  6. TIAPRIDE [Concomitant]
     Active Substance: TIAPRIDE
     Indication: DELIRIUM
     Dosage: UNK
  7. OLANZAPINE. [Suspect]
     Active Substance: OLANZAPINE
     Indication: MAJOR DEPRESSION
     Dosage: UNK UNK,UNK
     Route: 065
  8. MIRTAZAPINE. [Suspect]
     Active Substance: MIRTAZAPINE
     Indication: MAJOR DEPRESSION
     Dosage: UNK
     Route: 048
  9. PROPOFOL. [Concomitant]
     Active Substance: PROPOFOL
     Indication: DELIRIUM
     Dosage: UNK
  10. MELPERONE [Concomitant]
     Active Substance: MELPERONE
     Indication: DELIRIUM
     Dosage: UNK
  11. CITALOPRAM [Suspect]
     Active Substance: CITALOPRAM HYDROBROMIDE
     Indication: MAJOR DEPRESSION
     Dosage: SERIES OF CITALOPRAM INFUSIONS
  12. MEMANTINE. [Concomitant]
     Active Substance: MEMANTINE
     Indication: MAJOR DEPRESSION
     Dosage: UNK
  13. HALOPERIDOL. [Concomitant]
     Active Substance: HALOPERIDOL
     Indication: DELIRIUM
     Dosage: UNK
  14. VENLAFAXINE [Suspect]
     Active Substance: VENLAFAXINE HYDROCHLORIDE
     Indication: MAJOR DEPRESSION
     Dosage: UNK UNK,UNK
     Route: 065
  15. CLOMIPRAMINE [Suspect]
     Active Substance: CLOMIPRAMINE
     Indication: MAJOR DEPRESSION
     Dosage: UNK

REACTIONS (4)
  - Depression [Not Recovered/Not Resolved]
  - Drug ineffective [Unknown]
  - Suicide attempt [Recovered/Resolved]
  - Mental disorder [Not Recovered/Not Resolved]
